FAERS Safety Report 4369057-0 (Version None)
Quarter: 2004Q2

REPORT INFORMATION
  Report Type: 
  Country: None (occurrence: None)
  Receive Date: 20040525
  Receipt Date: 20040511
  Transmission Date: 20050107
  Serious: Yes (Hospitalization)
  Sender: FDA-Public Use
  Company Number: 2004-BP-02904BP

PATIENT
  Age: 50 Year
  Sex: Male

DRUGS (6)
  1. MIRAPEX [Suspect]
     Indication: PARKINSON'S DISEASE
     Dosage: 6.75 MG (NR, QD), PO
     Route: 048
     Dates: start: 19980101, end: 20030901
  2. SINEMET [Concomitant]
  3. SINEMET CR [Concomitant]
  4. AMANTADINE HCL [Concomitant]
  5. AMITRIPTYLINE HCL [Concomitant]
  6. COMTAM [Concomitant]

REACTIONS (7)
  - ABNORMAL BEHAVIOUR [None]
  - AGGRESSION [None]
  - IMPRISONMENT [None]
  - INFLUENZA [None]
  - INSOMNIA [None]
  - SUICIDAL IDEATION [None]
  - TREATMENT NONCOMPLIANCE [None]
